FAERS Safety Report 4278111-3 (Version None)
Quarter: 2004Q1

REPORT INFORMATION
  Report Type: 
  Country: None (occurrence: None)
  Receive Date: 20040123
  Receipt Date: 20040112
  Transmission Date: 20041129
  Serious: Yes (Death)
  Sender: FDA-Public Use
  Company Number: WAES 0401USA00838

PATIENT
  Age: 75 Year
  Sex: Male

DRUGS (2)
  1. FOSAMAX [Suspect]
     Indication: OSTEOPOROSIS
     Route: 048
     Dates: start: 19970101
  2. FOSAMAX [Suspect]
     Route: 048
     Dates: end: 20031201

REACTIONS (2)
  - DYSPHAGIA [None]
  - PNEUMONIA [None]
